FAERS Safety Report 19856135 (Version 1)
Quarter: 2021Q3

REPORT INFORMATION
  Report Type: Spontaneous
  Country: DE (occurrence: DE)
  Receive Date: 20210920
  Receipt Date: 20210920
  Transmission Date: 20211014
  Serious: Yes (Hospitalization)
  Sender: FDA-Public Use
  Company Number: DE-TEVA-2021-DE-1952784

PATIENT
  Age: 62 Year
  Sex: Female

DRUGS (7)
  1. GEMCITABINE. [Suspect]
     Active Substance: GEMCITABINE
     Route: 065
  2. BISOPROLOL [Concomitant]
     Active Substance: BISOPROLOL
     Dosage: 5 MILLIGRAM DAILY; 1?0?0?0
     Route: 048
  3. OPIPRAMOL [Concomitant]
     Active Substance: OPIPRAMOL
     Dosage: 2 DOSAGE FORMS DAILY; 50 MG, 0?0?2?0
     Route: 048
  4. NOVAMINSULFON 500MG LICHTENSTEIN [Concomitant]
     Active Substance: METAMIZOLE SODIUM
     Dosage: 500 MG, IF NECESSARY
     Route: 048
  5. KALIUMIODID/LEVOTHYROXIN?NATRIUM [Concomitant]
     Dosage: 1 DOSAGE FORMS DAILY; 150|5 MCG, 1?0?0?0
     Route: 048
  6. CISPLATIN. [Suspect]
     Active Substance: CISPLATIN
     Route: 065
  7. RAMIPRIL. [Concomitant]
     Active Substance: RAMIPRIL
     Dosage: 5 MILLIGRAM DAILY; 1?0?0?0
     Route: 048

REACTIONS (2)
  - Pyrexia [Unknown]
  - Tachycardia [Unknown]
